FAERS Safety Report 6262312-9 (Version None)
Quarter: 2009Q3

REPORT INFORMATION
  Report Type: 
  Country: None (occurrence: None)
  Receive Date: 20090709
  Receipt Date: 20090630
  Transmission Date: 20100115
  Serious: Yes (Hospitalization)
  Sender: FDA-Public Use
  Company Number: JP-BRISTOL-MYERS SQUIBB COMPANY-14693097

PATIENT
  Age: 39 Year
  Sex: Male

DRUGS (4)
  1. EFAVIRENZ CAPS 200 MG [Suspect]
     Indication: HIV INFECTION
     Route: 048
     Dates: start: 20071113
  2. EPIVIR [Suspect]
     Indication: HIV INFECTION
     Dosage: TABS
     Route: 048
     Dates: start: 20071113, end: 20080110
  3. ZIAGEN [Suspect]
     Indication: HIV INFECTION
     Dates: start: 20071113
  4. NOVORAPID [Concomitant]
     Dates: start: 20030101

REACTIONS (2)
  - BONE MARROW FAILURE [None]
  - NORMOCHROMIC NORMOCYTIC ANAEMIA [None]
